FAERS Safety Report 4653100-5 (Version None)
Quarter: 2005Q2

REPORT INFORMATION
  Report Type: 
  Country: None (occurrence: None)
  Receive Date: 20050502
  Receipt Date: 20050420
  Transmission Date: 20051028
  Serious: Yes (Hospitalization)
  Sender: FDA-Public Use
  Company Number: MEDI-0003225

PATIENT
  Age: 50 Year
  Sex: Male
  Weight: 96.1626 kg

DRUGS (10)
  1. ETHYOL [Suspect]
     Indication: CHEMOTHERAPY
     Dosage: 500 MG, 5 IN 1 WK, SUBCUTANEOUS
     Route: 058
     Dates: start: 20050406, end: 20050415
  2. ETHYOL [Suspect]
     Indication: RADIOTHERAPY
     Dosage: 500 MG, 5 IN 1 WK, SUBCUTANEOUS
     Route: 058
     Dates: start: 20050406, end: 20050415
  3. RADIATION THERAPY [Concomitant]
  4. CISPLATIN [Concomitant]
  5. ATENOLOL [Concomitant]
  6. ANZEMET (DOLASETRON MESILATE) [Concomitant]
  7. DEXAMETHASONE [Concomitant]
  8. EMEND [Concomitant]
  9. KYTRIL (GRANSISETRON) [Concomitant]
  10. ATIVAN [Concomitant]

REACTIONS (11)
  - DEHYDRATION [None]
  - DYSPNOEA [None]
  - HAEMATOCRIT DECREASED [None]
  - HAEMOGLOBIN DECREASED [None]
  - MUCOSAL INFLAMMATION [None]
  - PULMONARY OEDEMA [None]
  - PYREXIA [None]
  - RASH [None]
  - RENAL FAILURE ACUTE [None]
  - SHOCK [None]
  - TROPONIN INCREASED [None]
